FAERS Safety Report 6305576-5 (Version None)
Quarter: 2009Q3

REPORT INFORMATION
  Report Type: 
  Country: None (occurrence: None)
  Receive Date: 20090807
  Receipt Date: 20090724
  Transmission Date: 20100115
  Serious: Yes (Death)
  Sender: FDA-Public Use
  Company Number: 2009AL005031

PATIENT
  Age: 80 Year
  Sex: Male

DRUGS (7)
  1. RANITIDINE [Suspect]
     Indication: GASTRITIS PROPHYLAXIS
     Dosage: 10 ML;BID
     Dates: start: 20060821, end: 20061102
  2. METHYLPREDNISOLONE 4MG TAB [Concomitant]
  3. CYCLOPHOSPHAMIDE [Concomitant]
  4. PREDNISOLONE [Concomitant]
  5. CALCICHEW [Concomitant]
  6. ALENDRONIC ACID [Concomitant]
  7. PARAFFIN [Concomitant]

REACTIONS (4)
  - ASTHENIA [None]
  - DECREASED APPETITE [None]
  - DYSPNOEA [None]
  - RESUSCITATION [None]
